FAERS Safety Report 10597627 (Version 1)
Quarter: 2014Q4

REPORT INFORMATION
  Report Type: Spontaneous
  Country: US (occurrence: US)
  Receive Date: 20141121
  Receipt Date: 20141121
  Transmission Date: 20150529
  Serious: No
  Sender: FDA-Public Use
  Company Number: US-BIOGENIDEC-2014BI120520

PATIENT
  Sex: Female

DRUGS (1)
  1. AVONEX [Suspect]
     Active Substance: INTERFERON BETA-1A
     Indication: PRODUCT USED FOR UNKNOWN INDICATION
     Route: 030

REACTIONS (8)
  - Alopecia [Unknown]
  - Influenza like illness [Unknown]
  - Adverse event [Unknown]
  - Injection site pain [Unknown]
  - Migraine [Unknown]
  - Carpal tunnel syndrome [Recovered/Resolved]
  - Sciatica [Unknown]
  - Surgery [Recovered/Resolved]
